FAERS Safety Report 7330652-8 (Version None)
Quarter: 2011Q1

REPORT INFORMATION
  Report Type: 
  Country: None (occurrence: None)
  Receive Date: 20110225
  Receipt Date: 20110225
  Transmission Date: 20110831
  Serious: Yes (Hospitalization)
  Sender: FDA-Public Use
  Company Number: None

PATIENT
  Sex: Male

DRUGS (2)
  1. CEFEPIME [Suspect]
     Indication: WOUND INFECTION
     Dosage: 2G Q8 H IV
     Route: 042
     Dates: start: 20101221, end: 20110112
  2. CEFEPIME [Suspect]
     Indication: PSEUDOMONAS INFECTION
     Dosage: 2G Q8 H IV
     Route: 042
     Dates: start: 20101221, end: 20110112

REACTIONS (5)
  - WHITE BLOOD CELL COUNT DECREASED [None]
  - FEBRILE NEUTROPENIA [None]
  - HEADACHE [None]
  - PHOTOPHOBIA [None]
  - THROMBOCYTOPENIA [None]
